FAERS Safety Report 7474309-1 (Version None)
Quarter: 2011Q2

REPORT INFORMATION
  Report Type: 
  Country: None (occurrence: None)
  Receive Date: 20110511
  Receipt Date: 20110503
  Transmission Date: 20111010
  Serious: Yes (Other)
  Sender: FDA-Public Use
  Company Number: US-AMGEN-USASP2011021095

PATIENT
  Age: 53 Year
  Sex: Female
  Weight: 116.55 kg

DRUGS (11)
  1. CELEXA [Concomitant]
  2. PLAQUENIL [Concomitant]
  3. ZYRTEC [Concomitant]
  4. LASIX [Concomitant]
  5. ESTRADIOL [Concomitant]
  6. POTASSIUM [Concomitant]
  7. PROLIA [Suspect]
     Indication: OSTEOPOROSIS POSTMENOPAUSAL
     Dosage: 60 MG, Q6MO
     Dates: start: 20110415, end: 20110417
  8. VITAMIN A [Concomitant]
  9. FLEXERIL [Concomitant]
  10. NEXIUM [Concomitant]
  11. MECLIZINE                          /00072801/ [Concomitant]

REACTIONS (3)
  - DERMATITIS ALLERGIC [None]
  - HYPERSENSITIVITY [None]
  - INJECTION SITE DERMATITIS [None]
